FAERS Safety Report 14800584 (Version 1)
Quarter: 2018Q2

REPORT INFORMATION
  Report Type: Spontaneous
  Country: BR (occurrence: BR)
  Receive Date: 20180424
  Receipt Date: 20180424
  Transmission Date: 20180711
  Serious: Yes (Other)
  Sender: FDA-Public Use
  Company Number: PHHY2018BR071596

PATIENT
  Sex: Female

DRUGS (2)
  1. TASIGNA [Suspect]
     Active Substance: NILOTINIB
     Indication: CHRONIC MYELOID LEUKAEMIA
     Dosage: 800 MG, UNK
     Route: 065
     Dates: start: 201710
  2. TASIGNA [Suspect]
     Active Substance: NILOTINIB
     Indication: GENE MUTATION
     Dosage: 400 MG, QD
     Route: 065

REACTIONS (1)
  - Haematotoxicity [Recovered/Resolved]
